FAERS Safety Report 21358796 (Version 2)
Quarter: 2023Q2

REPORT INFORMATION
  Report Type: Report from Study
  Country: NO (occurrence: NO)
  Receive Date: 20220921
  Receipt Date: 20230424
  Transmission Date: 20230721
  Serious: Yes (Hospitalization)
  Sender: FDA-Public Use
  Company Number: NO-SA-SAC20220916001927

PATIENT
  Sex: Male

DRUGS (6)
  1. ISATUXIMAB [Suspect]
     Active Substance: ISATUXIMAB
     Indication: Plasma cell myeloma
     Dosage: 10 MG/KG (DAY 1, 15)
     Route: 065
     Dates: start: 20220818, end: 20220818
  2. ISATUXIMAB [Suspect]
     Active Substance: ISATUXIMAB
     Route: 065
  3. ISATUXIMAB [Suspect]
     Active Substance: ISATUXIMAB
     Dosage: 10 MG/KG (DAY 1, 15)
     Route: 065
     Dates: start: 20220901, end: 20220901
  4. BORTEZOMIB [Suspect]
     Active Substance: BORTEZOMIB
     Indication: Plasma cell myeloma
     Dosage: 1.3 MG/M2 (DAY 1,8,15)
     Dates: start: 20220818, end: 20220818
  5. BORTEZOMIB [Suspect]
     Active Substance: BORTEZOMIB
  6. BORTEZOMIB [Suspect]
     Active Substance: BORTEZOMIB
     Dosage: 1.3 MG/M2 (DAY 1,8,15)
     Dates: start: 20220901, end: 20220901

REACTIONS (1)
  - Escherichia sepsis [Recovered/Resolved]

NARRATIVE: CASE EVENT DATE: 20220912
